FAERS Safety Report 24982202 (Version 3)
Quarter: 2025Q2

REPORT INFORMATION
  Report Type: Spontaneous
  Country: FR (occurrence: FR)
  Receive Date: 20250218
  Receipt Date: 20250404
  Transmission Date: 20250717
  Serious: No
  Sender: PFIZER
  Company Number: FR-PFIZER INC-202500023263

PATIENT
  Age: 36 Year
  Sex: Male

DRUGS (1)
  1. SOMATROPIN [Suspect]
     Active Substance: SOMATROPIN
     Dates: start: 2017

REACTIONS (1)
  - Device breakage [Unknown]
